FAERS Safety Report 7898998-2 (Version None)
Quarter: 2011Q4

REPORT INFORMATION
  Report Type: 
  Country: None (occurrence: None)
  Receive Date: 20111107
  Receipt Date: 20111028
  Transmission Date: 20120403
  Serious: Yes (Hospitalization)
  Sender: FDA-Public Use
  Company Number: US-ASTRAZENECA-2011SE56957

PATIENT
  Age: 41 Year
  Sex: Female
  Weight: 40.8 kg

DRUGS (2)
  1. PRILOSEC [Suspect]
     Route: 048
  2. NEXIUM [Suspect]
     Route: 048

REACTIONS (7)
  - EROSIVE OESOPHAGITIS [None]
  - STOMATITIS [None]
  - DRUG INEFFECTIVE [None]
  - GASTRIC ULCER [None]
  - DRUG DOSE OMISSION [None]
  - DEHYDRATION [None]
  - WEIGHT DECREASED [None]
